FAERS Safety Report 7879329-0 (Version None)
Quarter: 2011Q4

REPORT INFORMATION
  Report Type: 
  Country: None (occurrence: None)
  Receive Date: 20111101
  Receipt Date: 20111019
  Transmission Date: 20120403
  Serious: Yes (Other)
  Sender: FDA-Public Use
  Company Number: DE-ELI_LILLY_AND_COMPANY-DE201107002934

PATIENT
  Sex: Female

DRUGS (14)
  1. FORTEO [Suspect]
     Indication: OSTEOPOROSIS
     Dosage: UNK, QD
     Route: 058
     Dates: start: 20100709
  2. DEKRISTOL [Concomitant]
  3. BISOLICH [Concomitant]
  4. LEVOTHYROXINE SODIUM [Concomitant]
  5. MAGNESIUM [Concomitant]
  6. FORMOTOP [Concomitant]
     Indication: DYSPNOEA
     Route: 055
  7. PREDNISOLONE [Concomitant]
  8. CLOPIDOGREL [Concomitant]
  9. SIMVASTATIN [Concomitant]
  10. FALITHROM [Concomitant]
  11. RAMIPRIL [Concomitant]
  12. BERODUAL [Concomitant]
     Dosage: UNK, PRN
     Route: 055
  13. TORSEMIDE [Concomitant]
     Indication: DIURETIC THERAPY
  14. PANTOPRAZOLE [Concomitant]
     Indication: ABDOMINAL DISCOMFORT

REACTIONS (6)
  - PROTEUS INFECTION [None]
  - CALCULUS BLADDER [None]
  - HEADACHE [None]
  - DYSURIA [None]
  - PAIN IN EXTREMITY [None]
  - ESCHERICHIA URINARY TRACT INFECTION [None]
